FAERS Safety Report 4886228-5 (Version None)
Quarter: 2006Q1

REPORT INFORMATION
  Report Type: 
  Country: None (occurrence: None)
  Receive Date: 20060118
  Receipt Date: 20060106
  Transmission Date: 20060701
  Serious: Yes (Life-Threatening, Hospitalization, Other)
  Sender: FDA-Public Use
  Company Number: 2006004594

PATIENT
  Age: 53 Year
  Sex: Female
  Weight: 104.3273 kg

DRUGS (12)
  1. LYRICA [Suspect]
     Indication: ARACHNOIDITIS
     Dosage: 300 MG (150 MG, 2 IN 1D)
     Dates: start: 20050915, end: 20060101
  2. MORPHINE SULFATE [Concomitant]
  3. DILAUDID [Concomitant]
  4. ORUVAIL [Concomitant]
  5. EFFEXOR XR [Concomitant]
  6. PREVACID [Concomitant]
  7. ALTACE [Concomitant]
  8. DESIPRAMINE HCL [Concomitant]
  9. METFORMIN HCL [Concomitant]
  10. LIPITOR [Concomitant]
  11. IMITREX [Concomitant]
  12. VENTOLIN [Concomitant]

REACTIONS (6)
  - CONFUSIONAL STATE [None]
  - DEPRESSED LEVEL OF CONSCIOUSNESS [None]
  - FATIGUE [None]
  - PAIN [None]
  - RENAL FAILURE ACUTE [None]
  - STAPHYLOCOCCAL SEPSIS [None]
